FAERS Safety Report 9092104 (Version 1)
Quarter: 2013Q1

REPORT INFORMATION
  Report Type: Spontaneous
  Country: US (occurrence: US)
  Receive Date: 20130131
  Receipt Date: 20130131
  Transmission Date: 20140127
  Serious: Yes (Hospitalization)
  Sender: FDA-Public Use
  Company Number: PHEH2013US002428

PATIENT
  Sex: Female

DRUGS (7)
  1. AFINITOR [Suspect]
     Indication: BREAST CANCER
     Dosage: 10 MG, QD
     Route: 048
     Dates: start: 20121220, end: 20130123
  2. AROMASIN [Concomitant]
  3. LISINOPRIL [Concomitant]
  4. HYDROCHOROTHIAZIDE [Concomitant]
  5. VERAPAMIL [Concomitant]
  6. DORZOLAMIDE W/TIMOLOL [Concomitant]
  7. LATANOPROST [Concomitant]

REACTIONS (10)
  - Blood magnesium decreased [Not Recovered/Not Resolved]
  - Syncope [Not Recovered/Not Resolved]
  - Face oedema [Not Recovered/Not Resolved]
  - Fluid retention [Not Recovered/Not Resolved]
  - Blood sodium decreased [Not Recovered/Not Resolved]
  - Rash generalised [Not Recovered/Not Resolved]
  - Sinusitis [Not Recovered/Not Resolved]
  - Asthenia [Not Recovered/Not Resolved]
  - Blood potassium decreased [Not Recovered/Not Resolved]
  - Blood glucose increased [Not Recovered/Not Resolved]
